FAERS Safety Report 15727046 (Version 1)
Quarter: 2018Q4

REPORT INFORMATION
  Report Type: Report from Study
  Country: DE (occurrence: DE)
  Receive Date: 20181217
  Receipt Date: 20181217
  Transmission Date: 20190205
  Serious: Yes (Hospitalization)
  Sender: FDA-Public Use
  Company Number: DE-ROCHE-2216954

PATIENT
  Age: 74 Year
  Sex: Female

DRUGS (1)
  1. TOCILIZUMAB. [Suspect]
     Active Substance: TOCILIZUMAB
     Indication: RHEUMATOID ARTHRITIS
     Route: 058

REACTIONS (6)
  - Cardiac pacemaker insertion [Unknown]
  - Cardiac disorder [Unknown]
  - Atrial fibrillation [Recovered/Resolved]
  - Bradycardia [Unknown]
  - Atrioventricular block [Unknown]
  - Device capturing issue [Unknown]

NARRATIVE: CASE EVENT DATE: 201810
